FAERS Safety Report 4599895-0 (Version None)
Quarter: 2005Q1

REPORT INFORMATION
  Report Type: 
  Country: None (occurrence: None)
  Receive Date: 20050307
  Receipt Date: 20050207
  Transmission Date: 20050727
  Serious: Yes (Life-Threatening, Hospitalization)
  Sender: FDA-Public Use
  Company Number: US-MERCK-0502USA00842

PATIENT
  Sex: Male

DRUGS (2)
  1. ZETIA [Suspect]
     Route: 048
  2. ZOCOR [Concomitant]
     Route: 048

REACTIONS (4)
  - CARCINOID TUMOUR [None]
  - DEHYDRATION [None]
  - DIARRHOEA [None]
  - RENAL TUBULAR NECROSIS [None]
